FAERS Safety Report 19999963 (Version 1)
Quarter: 2021Q4

REPORT INFORMATION
  Report Type: Spontaneous
  Country: CA (occurrence: CA)
  Receive Date: 20211027
  Receipt Date: 20211027
  Transmission Date: 20220303
  Serious: Yes (Other)
  Sender: FDA-Public Use
  Company Number: CA-GILEAD-2021-0554212

PATIENT
  Age: 58 Year
  Sex: Male

DRUGS (1)
  1. TRUVADA [Suspect]
     Active Substance: EMTRICITABINE\TENOFOVIR DISOPROXIL FUMARATE
     Indication: Prophylaxis against HIV infection
     Dosage: 1 DOSAGE FORM, QD
     Route: 048

REACTIONS (3)
  - Osteomyelitis [Recovered/Resolved with Sequelae]
  - Tooth loss [Recovered/Resolved with Sequelae]
  - Toothache [Recovered/Resolved with Sequelae]
